FAERS Safety Report 10164686 (Version 1)
Quarter: 2014Q2

REPORT INFORMATION
  Report Type: Spontaneous
  Country: US (occurrence: US)
  Receive Date: 20140510
  Receipt Date: 20140510
  Transmission Date: 20141212
  Serious: No
  Sender: FDA-Public Use
  Company Number: US-BRISTOL-MYERS SQUIBB COMPANY-20397980

PATIENT
  Age: 77 Year
  Sex: Female
  Weight: 88.43 kg

DRUGS (3)
  1. BYETTA [Suspect]
     Indication: TYPE 2 DIABETES MELLITUS
     Dates: start: 201402
  2. LEVEMIR [Suspect]
     Indication: TYPE 2 DIABETES MELLITUS
     Dosage: 1 D.F:33 UNITS QHS
     Route: 058
  3. HUMALOG [Suspect]
     Indication: TYPE 2 DIABETES MELLITUS
     Dosage: 11 UNITS AT BREAKFAST; 15 UNITS AT LUNCH; 19 UNITS AT DINNER TIME
     Route: 058

REACTIONS (2)
  - Blood glucose decreased [Unknown]
  - Constipation [Not Recovered/Not Resolved]
